FAERS Safety Report 4437431-X (Version None)
Quarter: 2004Q3

REPORT INFORMATION
  Report Type: 
  Country: None (occurrence: None)
  Receive Date: 20040830
  Receipt Date: 20040823
  Transmission Date: 20050211
  Serious: Yes (Other)
  Sender: FDA-Public Use
  Company Number: PHNU2004DE02994

PATIENT
  Sex: Female

DRUGS (6)
  1. DIOVAN [Suspect]
     Indication: HYPERTENSION
     Dosage: 80 MG/D
     Route: 048
     Dates: start: 20040801
  2. ARAVA [Suspect]
     Dates: start: 20040101
  3. RAMIPRIL [Concomitant]
     Dates: start: 20030101, end: 20040801
  4. SYNTESTAN [Concomitant]
  5. METHOTREXATE [Concomitant]
  6. ENBREL [Concomitant]

REACTIONS (1)
  - LYMPHOEDEMA [None]
